FAERS Safety Report 7227513-1 (Version None)
Quarter: 2011Q1

REPORT INFORMATION
  Report Type: 
  Country: None (occurrence: None)
  Receive Date: 20110105
  Receipt Date: 20101222
  Transmission Date: 20110831
  Serious: No
  Sender: FDA-Public Use
  Company Number: 024219

PATIENT
  Sex: Male

DRUGS (2)
  1. METFORMIN [Concomitant]
  2. KEPPRA [Suspect]
     Dosage: (500 MG BID)
     Dates: start: 20090101

REACTIONS (2)
  - ANAEMIA MACROCYTIC [None]
  - FOLATE DEFICIENCY [None]
